FAERS Safety Report 17910182 (Version 3)
Quarter: 2021Q1

REPORT INFORMATION
  Report Type: Spontaneous
  Country: US (occurrence: US)
  Receive Date: 20200618
  Receipt Date: 20210204
  Transmission Date: 20210419
  Serious: Yes (Other)
  Sender: FDA-Public Use
  Company Number: US-GILEAD-2020-0470184

PATIENT
  Age: 58 Year
  Sex: Female

DRUGS (1)
  1. ATRIPLA [Suspect]
     Active Substance: EFAVIRENZ\EMTRICITABINE\TENOFOVIR DISOPROXIL FUMARATE
     Indication: HEPATITIS C
     Dosage: UNK
     Route: 048
     Dates: start: 2013, end: 2019

REACTIONS (4)
  - End stage renal disease [Unknown]
  - Osteoarthritis [Not Recovered/Not Resolved]
  - Bone density decreased [Unknown]
  - Off label use [Recovered/Resolved]

NARRATIVE: CASE EVENT DATE: 2013
